FAERS Safety Report 4827098-0 (Version None)
Quarter: 2005Q4

REPORT INFORMATION
  Report Type: 
  Country: None (occurrence: None)
  Receive Date: 20051114
  Receipt Date: 20051109
  Transmission Date: 20060501
  Serious: Yes (Hospitalization)
  Sender: FDA-Public Use
  Company Number: US-GLAXOSMITHKLINE-A0581852A

PATIENT
  Age: 81 Year
  Sex: Female
  Weight: 36.8 kg

DRUGS (1)
  1. LOTRONEX [Suspect]
     Indication: IRRITABLE BOWEL SYNDROME
     Dosage: 1MG PER DAY
     Route: 048
     Dates: end: 20050101

REACTIONS (2)
  - DIARRHOEA [None]
  - WEIGHT DECREASED [None]
